FAERS Safety Report 8375987-5 (Version None)
Quarter: 2012Q1

REPORT INFORMATION
  Report Type: 
  Country: None (occurrence: None)
  Receive Date: 20120323
  Receipt Date: 20110728
  Transmission Date: 20120608
  Serious: Yes (Other)
  Sender: FDA-Public Use
  Company Number: 163-21880-11073386

PATIENT
  Age: 57 Year
  Sex: Male
  Weight: 73.0291 kg

DRUGS (9)
  1. VELCADE [Concomitant]
  2. DEXAMETHASONE [Concomitant]
  3. MULTIVITAMIN [Concomitant]
  4. REVLIMID [Suspect]
     Indication: MULTIPLE MYELOMA
     Dosage: 25 MG, QD X 21 DAYS/7, PO
     Route: 048
     Dates: start: 20100614
  5. HYDROCHLOROTHIAZIDE [Concomitant]
  6. LORTAB [Concomitant]
  7. LISINOPRIL [Concomitant]
  8. MORPHINE [Concomitant]
  9. COUMADIN [Concomitant]

REACTIONS (2)
  - INTERNATIONAL NORMALISED RATIO ABNORMAL [None]
  - CATARACT [None]
